FAERS Safety Report 7668399-0 (Version None)
Quarter: 2011Q3

REPORT INFORMATION
  Report Type: 
  Country: None (occurrence: None)
  Receive Date: 20110808
  Receipt Date: 20110726
  Transmission Date: 20111222
  Serious: Yes (Death)
  Sender: FDA-Public Use
  Company Number: NL-TEVA-294741ISR

PATIENT
  Sex: Female
  Weight: 60 kg

DRUGS (5)
  1. ENBREL [Suspect]
     Indication: RHEUMATOID ARTHRITIS
     Dates: start: 20050625, end: 20110309
  2. METHOTREXATE PCH TABLET 2.5MG [Suspect]
     Indication: RHEUMATOID ARTHRITIS
     Dates: start: 20000101
  3. CELEBREX [Concomitant]
     Dosage: 200 MILLIGRAM;
     Dates: start: 20010407
  4. LOSEC MUPS TABLET MSR 20MG [Concomitant]
     Dosage: 20 MILLIGRAM;
     Dates: start: 20010117
  5. FOLIUMZUUR ACTAVIS TABLET 5MG [Concomitant]
     Dosage: .7143 MILLIGRAM;
     Dates: start: 20010407

REACTIONS (1)
  - GALLBLADDER CANCER [None]
